FAERS Safety Report 7483443-1 (Version None)
Quarter: 2011Q2

REPORT INFORMATION
  Report Type: 
  Country: None (occurrence: None)
  Receive Date: 20110517
  Receipt Date: 20110505
  Transmission Date: 20111010
  Serious: Yes (Death)
  Sender: FDA-Public Use
  Company Number: JP-ASTRAZENECA-2011SE27538

PATIENT
  Age: 76 Year
  Sex: Male
  Weight: 85 kg

DRUGS (7)
  1. ENALAPRIL [Concomitant]
     Indication: ESSENTIAL HYPERTENSION
     Dates: start: 20060401
  2. CANDESARTAN CILEXETIL AND HYDROCHLOROTHIAZIDE [Suspect]
     Indication: ESSENTIAL HYPERTENSION
     Dosage: HCT 32/25 MG/D
     Route: 048
     Dates: start: 20101112
  3. ACETYL SALICYLIC ACID USP BAT [Concomitant]
     Route: 048
  4. SIMVASTATIN [Concomitant]
     Route: 048
  5. TORSEMIDE [Concomitant]
     Route: 048
  6. ATACAND HCT [Concomitant]
     Indication: ESSENTIAL HYPERTENSION
     Dosage: 16/12.5 MG
     Dates: start: 20070701
  7. EFEROX [Concomitant]
     Route: 048

REACTIONS (1)
  - DEATH [None]
